FAERS Safety Report 23986467 (Version 4)
Quarter: 2024Q3

REPORT INFORMATION
  Report Type: Spontaneous
  Country: AT (occurrence: AT)
  Receive Date: 20240618
  Receipt Date: 20240917
  Transmission Date: 20241016
  Serious: No
  Sender: PFIZER
  Company Number: AT-PFIZER INC-202400191215

PATIENT
  Age: 26 Year
  Sex: Female
  Weight: 53 kg

DRUGS (1)
  1. MEDROXYPROGESTERONE [Suspect]
     Active Substance: MEDROXYPROGESTERONE
     Indication: Contraception
     Dosage: UNK, CYCLIC
     Route: 058
     Dates: start: 20240607, end: 20240607

REACTIONS (4)
  - Drug dose omission by device [Unknown]
  - Poor quality device used [Unknown]
  - Device leakage [Unknown]
  - Syringe issue [Unknown]

NARRATIVE: CASE EVENT DATE: 20240607
